FAERS Safety Report 5113156-2 (Version None)
Quarter: 2006Q3

REPORT INFORMATION
  Report Type: 
  Country: None (occurrence: None)
  Receive Date: 20060922
  Receipt Date: 20060913
  Transmission Date: 20061208
  Serious: Yes (Hospitalization)
  Sender: FDA-Public Use
  Company Number: US-ABBOTT-06P-163-0343833-00

PATIENT
  Sex: Female
  Weight: 81.72 kg

DRUGS (7)
  1. MERIDIA [Suspect]
     Indication: WEIGHT CONTROL
     Route: 048
     Dates: start: 20060628, end: 20060728
  2. FUROSEMIDE [Concomitant]
     Indication: HYPERTENSION
     Route: 048
  3. ELOCON [Concomitant]
     Indication: RASH
     Route: 061
  4. LEVOTHYROXINE SODIUM [Concomitant]
     Indication: HYPOTHYROIDISM
     Route: 048
  5. DIPHENHYDRAMINE HYDROCHLORIDE [Concomitant]
     Indication: DRUG USE FOR UNKNOWN INDICATION
  6. CODEINE [Concomitant]
     Indication: PAIN
  7. THREE UNSPECIFIED PAINKILLERS [Concomitant]
     Indication: PAIN

REACTIONS (4)
  - MONOPLEGIA [None]
  - PAIN [None]
  - UNEVALUABLE EVENT [None]
  - URINARY TRACT INFECTION [None]
